FAERS Safety Report 10271001 (Version 2)
Quarter: 2014Q3

REPORT INFORMATION
  Report Type: Spontaneous
  Country: US (occurrence: US)
  Receive Date: 20140701
  Receipt Date: 20140701
  Transmission Date: 20150326
  Serious: Yes (Other)
  Sender: FDA-Public Use
  Company Number: US-BANPHARM-20142822

PATIENT
  Sex: Female

DRUGS (2)
  1. GENERIC LOW DOSE ASPIRIN [Concomitant]
  2. ALEVE [Suspect]
     Active Substance: NAPROXEN SODIUM
     Indication: PAIN
     Dosage: 1-2 DF,
     Route: 048
     Dates: start: 201311

REACTIONS (7)
  - Vascular rupture [Recovered/Resolved]
  - Contusion [Not Recovered/Not Resolved]
  - Sedation [Recovered/Resolved]
  - Skin mass [Not Recovered/Not Resolved]
  - Incorrect drug administration duration [Unknown]
  - Incorrect drug administration rate [Unknown]
  - Nausea [Recovered/Resolved]
